FAERS Safety Report 25036227 (Version 1)
Quarter: 2025Q1

REPORT INFORMATION
  Report Type: Spontaneous
  Country: US (occurrence: None)
  Receive Date: 20250303
  Receipt Date: 20250303
  Transmission Date: 20250409
  Serious: Yes (Hospitalization, Disabling)
  Sender: FDA-CTU
  Company Number: None

PATIENT
  Age: 54 Year
  Sex: Female
  Weight: 68.4 kg

DRUGS (4)
  1. LEVOFLOXACIN [Suspect]
     Active Substance: LEVOFLOXACIN
     Indication: Helicobacter infection
     Dosage: 1 TABLET DAILY ORAL
     Route: 048
  2. LOSARTAN [Concomitant]
     Active Substance: LOSARTAN
  3. METOPROLOL [Concomitant]
     Active Substance: METOPROLOL
  4. Amolipidine [Concomitant]

REACTIONS (8)
  - Vomiting [None]
  - Tremor [None]
  - Headache [None]
  - Paraesthesia [None]
  - Hypoaesthesia [None]
  - Grip strength decreased [None]
  - Pain in extremity [None]
  - Pain in extremity [None]

NARRATIVE: CASE EVENT DATE: 20250226
